FAERS Safety Report 10376231 (Version 1)
Quarter: 2014Q3

REPORT INFORMATION
  Report Type: Spontaneous
  Country: US (occurrence: US)
  Receive Date: 20140811
  Receipt Date: 20140811
  Transmission Date: 20150326
  Serious: No
  Sender: FDA-Public Use
  Company Number: US-ASTRAZENECA-2013SE73326

PATIENT
  Age: 29300 Day
  Sex: Female
  Weight: 60.8 kg

DRUGS (2)
  1. ARIMIDEX [Suspect]
     Active Substance: ANASTROZOLE
     Indication: MALIGNANT BREAST LUMP REMOVAL
     Dosage: ONCE DAILY
     Route: 048
     Dates: start: 20130903, end: 20130911
  2. EYLEA [Concomitant]
     Active Substance: AFLIBERCEPT
     Indication: MACULAR DEGENERATION
     Dosage: UNK SHOT EVERY 5-6WE

REACTIONS (2)
  - Vitreous floaters [Recovering/Resolving]
  - Drug dose omission [Unknown]

NARRATIVE: CASE EVENT DATE: 20130907
